FAERS Safety Report 22085316 (Version 1)
Quarter: 2023Q1

REPORT INFORMATION
  Report Type: Spontaneous
  Country: CN (occurrence: CN)
  Receive Date: 20230310
  Receipt Date: 20230310
  Transmission Date: 20230418
  Serious: Yes (Other)
  Sender: FDA-Public Use
  Company Number: CN-GUERBET / FUNDTRIP PHARMACEUTICALS-CN-20230056

PATIENT
  Age: 3 Year
  Sex: Male

DRUGS (9)
  1. LIPIODOL [Suspect]
     Active Substance: ETHIODIZED OIL
     Indication: Transcatheter arterial chemoembolisation
     Dosage: VIA THE RIGHT RENAL ARTERY
     Route: 013
  2. LIPIODOL [Suspect]
     Active Substance: ETHIODIZED OIL
     Dosage: VIA THE RIGHT LUMBAR ARTERY
     Route: 013
  3. GELFOAM [Concomitant]
     Active Substance: GELATIN\THROMBIN HUMAN
     Indication: Transcatheter arterial chemoembolisation
     Route: 013
  4. VINDESINE [Concomitant]
     Active Substance: VINDESINE
     Indication: Transcatheter arterial chemoembolisation
     Dosage: VIA THE RIGHT RENAL ARTERY
     Route: 013
  5. VINDESINE [Concomitant]
     Active Substance: VINDESINE
     Dosage: VIA THE RIGHT LUMBAR ARTERY
     Route: 013
  6. PIRARUBICIN [Concomitant]
     Active Substance: PIRARUBICIN
     Indication: Transcatheter arterial chemoembolisation
     Dosage: VIA THE RIGHT RENAL ARTERY
     Route: 013
  7. PIRARUBICIN [Concomitant]
     Active Substance: PIRARUBICIN
     Dosage: VIA THE RIGHT LUMBAR ARTERY
     Route: 013
  8. CISPLATIN [Concomitant]
     Active Substance: CISPLATIN
     Indication: Transcatheter arterial chemoembolisation
     Dosage: VIA THE RIGHT RENAL ARTERY
     Route: 013
  9. CISPLATIN [Concomitant]
     Active Substance: CISPLATIN
     Dosage: VIA THE RIGHT LUMBAR ARTERY
     Route: 013

REACTIONS (3)
  - Spinal cord injury [Recovering/Resolving]
  - Pyrexia [Recovered/Resolved]
  - Product use in unapproved indication [Recovering/Resolving]
